FAERS Safety Report 8325088 (Version 2)
Quarter: 2013Q3

REPORT INFORMATION
  Report Type: Spontaneous
  Country: US (occurrence: US)
  Receive Date: 20120106
  Receipt Date: 20130829
  Transmission Date: 20140515
  Serious: Yes (Hospitalization, Other)
  Sender: FDA-Public Use
  Company Number: US-BAYER-2011-124565

PATIENT
  Age: 17 Year
  Sex: Female
  Weight: 86.17 kg

DRUGS (7)
  1. YAZ [Suspect]
     Indication: ACNE
     Dosage: UNK
     Dates: start: 20080705, end: 20090914
  2. YAZ [Suspect]
     Indication: PREMENSTRUAL SYNDROME
  3. YAZ [Suspect]
     Indication: PREMENSTRUAL DYSPHORIC DISORDER
  4. OCELLA [Suspect]
     Indication: ACNE
     Dosage: UNK
     Dates: start: 20080705, end: 20090914
  5. OCELLA [Suspect]
     Indication: PREMENSTRUAL SYNDROME
  6. OCELLA [Suspect]
     Indication: PREMENSTRUAL DYSPHORIC DISORDER
  7. IBUPROFEN [Concomitant]

REACTIONS (5)
  - Cholelithiasis [None]
  - Cholecystitis chronic [None]
  - Emotional distress [None]
  - Injury [None]
  - Pain [None]
